FAERS Safety Report 25268557 (Version 1)
Quarter: 2025Q2

REPORT INFORMATION
  Report Type: Spontaneous
  Country: BE (occurrence: BE)
  Receive Date: 20250505
  Receipt Date: 20250505
  Transmission Date: 20250717
  Serious: Yes (Hospitalization, Other)
  Sender: Harrow Health
  Company Number: BE-HARROW-HAR-2025-BE-00130

PATIENT
  Age: 70 Year
  Sex: Female

DRUGS (1)
  1. TOBRADEX ST [Suspect]
     Active Substance: DEXAMETHASONE\TOBRAMYCIN

REACTIONS (4)
  - Endophthalmitis [Recovered/Resolved]
  - Scleritis [Recovered/Resolved]
  - Iridocyclitis [Recovered/Resolved]
  - Iris transillumination defect [Not Recovered/Not Resolved]
